FAERS Safety Report 11060337 (Version 2)
Quarter: 2016Q4

REPORT INFORMATION
  Report Type: Spontaneous
  Country: US (occurrence: US)
  Receive Date: 20150423
  Receipt Date: 20161212
  Transmission Date: 20170206
  Serious: Yes (Hospitalization, Other)
  Sender: FDA-Public Use
  Company Number: US-PFIZER INC-2015135420

PATIENT
  Age: 7 Year
  Sex: Male

DRUGS (2)
  1. GENOTROPIN [Suspect]
     Active Substance: SOMATROPIN
     Indication: DWARFISM
     Dosage: UNK
     Dates: start: 20140909
  2. GENOTROPIN [Suspect]
     Active Substance: SOMATROPIN
     Dosage: 0.6 MG, 1X/DAY (QD)
     Route: 058
     Dates: start: 20140923

REACTIONS (4)
  - Tonsillitis [Recovered/Resolved]
  - Infection [Unknown]
  - Coarctation of the aorta [Unknown]
  - Mydriasis [Recovering/Resolving]

NARRATIVE: CASE EVENT DATE: 2015
